FAERS Safety Report 7700315-5 (Version None)
Quarter: 2011Q3

REPORT INFORMATION
  Report Type: 
  Country: None (occurrence: None)
  Receive Date: 20110822
  Receipt Date: 20110815
  Transmission Date: 20111222
  Serious: Yes (Hospitalization)
  Sender: FDA-Public Use
  Company Number: PHHY2011CL73851

PATIENT
  Age: 67 Year
  Sex: Female

DRUGS (5)
  1. BISOPROLOL FUMARATE [Concomitant]
  2. ZOLEDRONOC ACID [Suspect]
     Indication: OSTEOPOROSIS
     Dosage: 5 MG, UNK
     Route: 042
     Dates: start: 20091001
  3. CARDIOASPIRINA [Concomitant]
  4. LEVOTHYROXINE SODIUM [Concomitant]
  5. LIPITOR [Concomitant]

REACTIONS (2)
  - MYOCARDIAL INFARCTION [None]
  - ARTERIAL OCCLUSIVE DISEASE [None]
